FAERS Safety Report 6297318-7 (Version None)
Quarter: 2009Q3

REPORT INFORMATION
  Report Type: 
  Country: None (occurrence: None)
  Receive Date: 20090805
  Receipt Date: 20090728
  Transmission Date: 20100115
  Serious: Yes (Other)
  Sender: FDA-Public Use
  Company Number: GB-PFIZER INC-2009247089

PATIENT
  Age: 57 Year

DRUGS (1)
  1. FESOTERODINE [Suspect]
     Indication: HYPERTONIC BLADDER
     Dosage: 8 MG, 1X/DAY
     Route: 048
     Dates: start: 20090728, end: 20090828

REACTIONS (3)
  - CHEST DISCOMFORT [None]
  - HEADACHE [None]
  - THROAT TIGHTNESS [None]
